FAERS Safety Report 5413038-2 (Version None)
Quarter: 2007Q3

REPORT INFORMATION
  Report Type: 
  Country: None (occurrence: None)
  Receive Date: 20070713
  Receipt Date: 20060922
  Transmission Date: 20080115
  Serious: No
  Sender: FDA-Public Use
  Company Number: 2006SP003390

PATIENT
  Age: 71 Year
  Sex: Female
  Weight: 58.514 kg

DRUGS (5)
  1. LUNESTA [Suspect]
     Indication: INSOMNIA
     Dosage: 1 MG; ORAL, .5 MG; ORAL
     Route: 048
     Dates: start: 20060901
  2. LUNESTA [Suspect]
     Indication: INSOMNIA
     Dosage: 1 MG; ORAL, .5 MG; ORAL
     Route: 048
     Dates: start: 20060920
  3. EVISTA [Concomitant]
  4. SYNTHROID [Concomitant]
  5. VITAMINS [Concomitant]

REACTIONS (1)
  - DYSGEUSIA [None]
